FAERS Safety Report 12935221 (Version 1)
Quarter: 2016Q4

REPORT INFORMATION
  Report Type: Spontaneous
  Country: US (occurrence: US)
  Receive Date: 20161114
  Receipt Date: 20161114
  Transmission Date: 20170207
  Serious: No
  Sender: FDA-Public Use
  Company Number: US-JAZZ-2016-US-018285

PATIENT
  Sex: Female

DRUGS (19)
  1. MAGNESIUM OXIDE. [Concomitant]
     Active Substance: MAGNESIUM OXIDE
  2. LEVOTHYROXINE. [Concomitant]
     Active Substance: LEVOTHYROXINE
  3. XYREM [Suspect]
     Active Substance: SODIUM OXYBATE
     Dosage: 3 G, BID
     Route: 048
     Dates: start: 201607
  4. AMOXICILLIN. [Concomitant]
     Active Substance: AMOXICILLIN
  5. MELOXICAM. [Concomitant]
     Active Substance: MELOXICAM
  6. NAPROXEN SODIUM. [Concomitant]
     Active Substance: NAPROXEN SODIUM
  7. IBUPROFEN. [Concomitant]
     Active Substance: IBUPROFEN
  8. VENLAFAXINE HCL [Concomitant]
     Active Substance: VENLAFAXINE HYDROCHLORIDE
  9. CALCIUM [Concomitant]
     Active Substance: CALCIUM
  10. ORPHENADRINE [Concomitant]
     Active Substance: ORPHENADRINE
  11. PRAVASTATIN. [Concomitant]
     Active Substance: PRAVASTATIN
  12. PROAIR HFA [Concomitant]
     Active Substance: ALBUTEROL SULFATE
  13. SIMVASTATIN. [Concomitant]
     Active Substance: SIMVASTATIN
  14. XYREM [Suspect]
     Active Substance: SODIUM OXYBATE
     Indication: NARCOLEPSY
     Dosage: 2.25 G, BID
     Route: 048
     Dates: start: 201507, end: 201507
  15. XYREM [Suspect]
     Active Substance: SODIUM OXYBATE
     Dosage: DOSE ADJUSTMENTS
     Route: 048
     Dates: start: 201507, end: 201607
  16. VITAMIN E                          /00110501/ [Concomitant]
     Active Substance: TOCOPHEROL
  17. MODAFINIL. [Concomitant]
     Active Substance: MODAFINIL
  18. MULTIVITAMINES WITH IRON           /02170101/ [Concomitant]
  19. MONTELUKAST SODIUM. [Concomitant]
     Active Substance: MONTELUKAST SODIUM

REACTIONS (2)
  - Eye disorder [Not Recovered/Not Resolved]
  - Dyspepsia [Unknown]
